FAERS Safety Report 7720521-3 (Version None)
Quarter: 2011Q3

REPORT INFORMATION
  Report Type: 
  Country: None (occurrence: None)
  Receive Date: 20110831
  Receipt Date: 20110831
  Transmission Date: 20111222
  Serious: No
  Sender: FDA-Public Use
  Company Number: None

PATIENT
  Age: 16 Year
  Sex: Female
  Weight: 58.967 kg

DRUGS (1)
  1. SPRINTEC [Suspect]
     Indication: CONTRACEPTION
     Dosage: 1
     Route: 048

REACTIONS (7)
  - ACNE [None]
  - HEADACHE [None]
  - NAUSEA [None]
  - PARALYSIS [None]
  - HALLUCINATION, VISUAL [None]
  - FATIGUE [None]
  - EYE DISORDER [None]
